FAERS Safety Report 9948979 (Version 2)
Quarter: 2014Q4

REPORT INFORMATION
  Report Type: Report from Study
  Country: US (occurrence: US)
  Receive Date: 20140304
  Receipt Date: 20141124
  Transmission Date: 20150529
  Serious: Yes (Hospitalization, Other)
  Sender: FDA-Public Use
  Company Number: US-ROCHE-1354256

PATIENT
  Age: 47 Year
  Sex: Female

DRUGS (19)
  1. ACTEMRA [Interacting]
     Active Substance: TOCILIZUMAB
     Route: 042
     Dates: start: 201401
  2. ACTEMRA [Interacting]
     Active Substance: TOCILIZUMAB
     Route: 042
     Dates: start: 20140207
  3. RITUXAN [Suspect]
     Active Substance: RITUXIMAB
     Indication: JUVENILE IDIOPATHIC ARTHRITIS
     Route: 042
  4. PROTONIX (PANTOPRAZOLE SODIUM) [Concomitant]
  5. OMEPRAZOLE. [Interacting]
     Active Substance: OMEPRAZOLE
     Indication: PRODUCT USED FOR UNKNOWN INDICATION
     Route: 065
  6. METHOTREXATE [Suspect]
     Active Substance: METHOTREXATE
     Indication: RHEUMATOID ARTHRITIS
     Route: 030
  7. ACTEMRA [Interacting]
     Active Substance: TOCILIZUMAB
     Indication: RHEUMATOID ARTHRITIS
     Route: 042
     Dates: start: 201307
  8. NORCO [Concomitant]
     Active Substance: ACETAMINOPHEN\HYDROCODONE BITARTRATE
     Dosage: PRN,  1/2 TAB
     Route: 065
  9. ACTEMRA [Interacting]
     Active Substance: TOCILIZUMAB
     Route: 042
     Dates: start: 201311
  10. ACTEMRA [Interacting]
     Active Substance: TOCILIZUMAB
     Route: 042
     Dates: start: 201312
  11. ACTEMRA [Interacting]
     Active Substance: TOCILIZUMAB
     Route: 042
     Dates: start: 201212
  12. RITUXAN [Suspect]
     Active Substance: RITUXIMAB
     Indication: RHEUMATOID ARTHRITIS
     Route: 042
     Dates: start: 2006
  13. RITUXAN [Suspect]
     Active Substance: RITUXIMAB
     Route: 042
     Dates: start: 2009, end: 2009
  14. ATIVAN [Concomitant]
     Active Substance: LORAZEPAM
     Indication: NAUSEA
     Route: 065
  15. AMBIEN [Concomitant]
     Active Substance: ZOLPIDEM TARTRATE
  16. DIAMOX SEQUELS [Concomitant]
     Active Substance: ACETAZOLAMIDE
     Indication: BENIGN INTRACRANIAL HYPERTENSION
     Route: 065
  17. ACTEMRA [Suspect]
     Active Substance: TOCILIZUMAB
     Indication: JUVENILE IDIOPATHIC ARTHRITIS
     Route: 042
     Dates: start: 2010, end: 201210
  18. METHOTREXATE [Suspect]
     Active Substance: METHOTREXATE
     Indication: JUVENILE IDIOPATHIC ARTHRITIS
     Route: 065
     Dates: end: 20141001
  19. PRILOSEC OTC [Concomitant]
     Active Substance: OMEPRAZOLE MAGNESIUM
     Route: 065

REACTIONS (10)
  - Nasopharyngitis [Unknown]
  - Drug hypersensitivity [Recovered/Resolved]
  - Quality of life decreased [Unknown]
  - Blood cholesterol increased [Recovering/Resolving]
  - Blood cholesterol increased [Not Recovered/Not Resolved]
  - Drug specific antibody present [Unknown]
  - Malaise [Not Recovered/Not Resolved]
  - Drug hypersensitivity [Recovered/Resolved]
  - Drug interaction [Unknown]
  - Tuberculin test positive [Not Recovered/Not Resolved]

NARRATIVE: CASE EVENT DATE: 2009
